FAERS Safety Report 10167303 (Version 1)
Quarter: 2014Q2

REPORT INFORMATION
  Report Type: Spontaneous
  Country: US (occurrence: None)
  Receive Date: 20140509
  Receipt Date: 20140509
  Transmission Date: 20141212
  Serious: Yes (Other)
  Sender: FDA-Public Use
  Company Number: None

PATIENT
  Age: 11 Year
  Sex: Female
  Weight: 68.04 kg

DRUGS (1)
  1. AZITHROMYCIN 250 MG [Suspect]
     Indication: EAR INFECTION
     Dosage: 2 PILLS DAY 1; 1 PILL DAY 2-5, ONCE DAILY, TAKEN BY MOUTH
     Route: 048
     Dates: start: 20140505, end: 20140506

REACTIONS (2)
  - Urticaria [None]
  - Pruritus [None]
